FAERS Safety Report 19173308 (Version 1)
Quarter: 2021Q2

REPORT INFORMATION
  Report Type: Report from Study
  Country: IT (occurrence: IT)
  Receive Date: 20210423
  Receipt Date: 20210423
  Transmission Date: 20210717
  Serious: Yes (Other)
  Sender: FDA-Public Use
  Company Number: IT-ACCORD-223149

PATIENT
  Age: 37 Year
  Sex: Female

DRUGS (1)
  1. PACLITAXEL/PACLITAXEL LIPOSOME [Suspect]
     Active Substance: PACLITAXEL
     Indication: BREAST CANCER
     Dosage: CONCENTRATE FOR SOLUTION FOR INJECTION
     Route: 042
     Dates: start: 20210401, end: 20210401

REACTIONS (3)
  - Pain [Recovered/Resolved]
  - Hypersensitivity [Recovered/Resolved]
  - Loss of consciousness [Recovered/Resolved]

NARRATIVE: CASE EVENT DATE: 20210401
